FAERS Safety Report 22645019 (Version 1)
Quarter: 2023Q2

REPORT INFORMATION
  Report Type: Report from Study
  Country: US (occurrence: US)
  Receive Date: 20230627
  Receipt Date: 20230627
  Transmission Date: 20230722
  Serious: Yes (Other)
  Sender: FDA-Public Use
  Company Number: US-002147023-NVSC2023US142833

PATIENT
  Sex: Male

DRUGS (1)
  1. ENTRESTO [Suspect]
     Active Substance: SACUBITRIL\VALSARTAN
     Indication: Product used for unknown indication
     Dosage: UNK
     Route: 065
     Dates: start: 202211

REACTIONS (6)
  - Gastric perforation [Unknown]
  - Hernia [Unknown]
  - Heart rate abnormal [Recovered/Resolved]
  - Asthenia [Unknown]
  - Visual impairment [Unknown]
  - Product dose omission in error [Unknown]
